FAERS Safety Report 5070896-1 (Version None)
Quarter: 2006Q3

REPORT INFORMATION
  Report Type: 
  Country: None (occurrence: None)
  Receive Date: 20060804
  Receipt Date: 20060725
  Transmission Date: 20061208
  Serious: Yes (Other)
  Sender: FDA-Public Use
  Company Number: FR-JNJFOC-20060304493

PATIENT
  Sex: Female

DRUGS (7)
  1. REMINYL [Suspect]
     Indication: DEMENTIA ALZHEIMER'S TYPE
     Route: 048
     Dates: start: 20050701, end: 20060301
  2. MUCOMYST [Concomitant]
     Indication: BRONCHIECTASIS
     Route: 048
  3. PNEUMOREL [Concomitant]
     Indication: BRONCHIECTASIS
     Route: 048
  4. OGAST [Concomitant]
     Indication: GASTROOESOPHAGEAL REFLUX DISEASE
     Dosage: 1 DOSE = 1 TABLET
     Route: 048
  5. MOVICOL [Concomitant]
     Indication: CONSTIPATION
     Dosage: 1-2 TIMES
     Route: 048
  6. COMBIVENT [Concomitant]
     Indication: BRONCHIECTASIS
     Route: 055
  7. TEMESTA [Concomitant]
     Indication: INSOMNIA
     Dosage: 1 DOSE = 1 TABLET
     Route: 048

REACTIONS (1)
  - CYTOLYTIC HEPATITIS [None]
